FAERS Safety Report 13705387 (Version 1)
Quarter: 2017Q2

REPORT INFORMATION
  Report Type: Spontaneous
  Country: US (occurrence: US)
  Receive Date: 20170630
  Receipt Date: 20170630
  Transmission Date: 20170830
  Serious: Yes (Disabling)
  Sender: FDA-Public Use
  Company Number: None

PATIENT
  Age: 70 Year
  Sex: Male
  Weight: 72.58 kg

DRUGS (5)
  1. DOXY-CYCLINE HYC 100MG CAP CIT [Suspect]
     Active Substance: DOXYCYCLINE HYCLATE
     Indication: ARTHROPOD BITE
     Route: 048
     Dates: start: 20160920, end: 20160930
  2. LEVOTHYROXINE. [Concomitant]
     Active Substance: LEVOTHYROXINE
  3. MEGA-MEN VITAMINS GNC [Concomitant]
  4. VALSARAN [Concomitant]
  5. VITRON-C IRON TABLET [Concomitant]

REACTIONS (7)
  - Haematemesis [None]
  - Headache [None]
  - Photophobia [None]
  - Haematochezia [None]
  - Fatigue [None]
  - Asthenia [None]
  - Arthralgia [None]

NARRATIVE: CASE EVENT DATE: 20160920
